FAERS Safety Report 5699572-9 (Version None)
Quarter: 2008Q2

REPORT INFORMATION
  Report Type: 
  Country: None (occurrence: None)
  Receive Date: 20080408
  Receipt Date: 20080408
  Transmission Date: 20081010
  Serious: Yes (Hospitalization)
  Sender: FDA-Public Use
  Company Number: None

PATIENT
  Age: 78 Year
  Sex: Female

DRUGS (1)
  1. XELODA [Suspect]
     Indication: CLOSTRIDIAL INFECTION
     Dosage: 500 2 4-QD PO
     Route: 048
     Dates: start: 20050501, end: 20080401

REACTIONS (1)
  - CLOSTRIDIUM DIFFICILE COLITIS [None]
